FAERS Safety Report 9853848 (Version 3)
Quarter: 2014Q4

REPORT INFORMATION
  Report Type: Report from Study
  Country: JP (occurrence: JP)
  Receive Date: 20140129
  Receipt Date: 20141229
  Transmission Date: 20150529
  Serious: Yes (Hospitalization, Other)
  Sender: FDA-Public Use
  Company Number: JP-TAKEDA-2014TUS000617

PATIENT
  Age: 68 Year
  Sex: Male
  Weight: 65 kg

DRUGS (10)
  1. HERBESSER [Concomitant]
     Active Substance: DILTIAZEM HYDROCHLORIDE
     Indication: HYPERTENSION
     Dosage: 100 MG, QD
     Route: 048
     Dates: start: 20070216
  2. FEBUXOSTAT. [Suspect]
     Active Substance: FEBUXOSTAT
     Indication: HYPERURICAEMIA
     Dosage: 20 MG, QD
     Route: 048
     Dates: start: 20121109
  3. MAINTATE [Concomitant]
     Active Substance: BISOPROLOL FUMARATE
     Indication: HYPERTENSION
     Dosage: 5 MG, QD
     Route: 048
     Dates: start: 20030516
  4. GLYCYRON [Concomitant]
     Active Substance: AMMONIUM GLYCYRRHIZATE\GLYCINE\METHIONINE
     Indication: LIVER DISORDER
  5. GLYCYRON [Concomitant]
     Active Substance: AMMONIUM GLYCYRRHIZATE\GLYCINE\METHIONINE
     Indication: HEPATOCELLULAR CARCINOMA
     Dosage: 1 DF, TID
     Route: 048
     Dates: start: 20030516
  6. CEFMETAZOLE NA [Concomitant]
     Indication: HEPATOCELLULAR CARCINOMA
     Dosage: 1 G, BID
     Route: 041
     Dates: start: 20130305, end: 20130305
  7. DIOVAN [Concomitant]
     Active Substance: VALSARTAN
     Indication: HYPERTENSION
     Dosage: 80 MG, QD
     Route: 048
     Dates: start: 20030516
  8. MIYA-BM [Concomitant]
     Active Substance: CLOSTRIDIUM BUTYRICUM SPORES STRAIN M-55
     Indication: CONSTIPATION PROPHYLAXIS
     Dosage: 1 GRAM, AS NEEDED
     Route: 048
     Dates: start: 20130307
  9. DAIKENTYUTO [Concomitant]
     Active Substance: HERBALS
     Indication: HEPATOCELLULAR CARCINOMA
     Dosage: 2.5 G, TID
     Route: 048
     Dates: start: 20130307
  10. MAGNESIUM OXIDE. [Concomitant]
     Active Substance: MAGNESIUM OXIDE
     Indication: CONSTIPATION PROPHYLAXIS
     Dosage: 0.6 GRAM, AS NEEDED
     Route: 048
     Dates: start: 20130115

REACTIONS (4)
  - Acute tonsillitis [Recovered/Resolved]
  - Hepatocellular carcinoma [Recovering/Resolving]
  - Upper respiratory tract inflammation [Recovered/Resolved]
  - Hypertension [Recovering/Resolving]

NARRATIVE: CASE EVENT DATE: 20121121
